FAERS Safety Report 25738631 (Version 1)
Quarter: 2025Q3

REPORT INFORMATION
  Report Type: Spontaneous
  Country: US (occurrence: US)
  Receive Date: 20250829
  Receipt Date: 20250829
  Transmission Date: 20251020
  Serious: Yes (Other)
  Sender: MDD OPERATIONS
  Company Number: US-MDD US Operations-MDD202506-002311

PATIENT
  Age: 79 Year
  Sex: Male

DRUGS (1)
  1. ONAPGO [Suspect]
     Active Substance: APOMORPHINE HYDROCHLORIDE
     Indication: Parkinson^s disease
     Dates: start: 20250618

REACTIONS (7)
  - Delirium [Unknown]
  - Psychomotor hyperactivity [Unknown]
  - Injection site reaction [Unknown]
  - Agitation [Unknown]
  - Anger [Unknown]
  - Restlessness [Unknown]
  - Infusion site bruising [Recovered/Resolved]

NARRATIVE: CASE EVENT DATE: 20250101
